FAERS Safety Report 14290888 (Version 2)
Quarter: 2018Q2

REPORT INFORMATION
  Report Type: Spontaneous
  Country: NL (occurrence: NL)
  Receive Date: 20171215
  Receipt Date: 20180405
  Transmission Date: 20180711
  Serious: No
  Sender: FDA-Public Use
  Company Number: NL-JNJFOC-20171209844

PATIENT
  Age: 62 Year
  Sex: Male

DRUGS (7)
  1. AMITRIPTYLINE [Interacting]
     Active Substance: AMITRIPTYLINE
     Indication: METASTASES TO BONE
     Route: 065
  2. ENZALUTAMIDE [Interacting]
     Active Substance: ENZALUTAMIDE
     Indication: HORMONE-REFRACTORY PROSTATE CANCER
     Route: 065
  3. DEXAMETHASONE. [Interacting]
     Active Substance: DEXAMETHASONE
     Indication: METASTASES TO BONE
     Route: 065
  4. FENTANYL. [Interacting]
     Active Substance: FENTANYL
     Indication: METASTASES TO BONE
     Route: 048
  5. FENTANYL. [Suspect]
     Active Substance: FENTANYL
     Indication: PAIN
     Route: 062
  6. PREGABALIN. [Interacting]
     Active Substance: PREGABALIN
     Indication: METASTASES TO BONE
     Route: 065
  7. FENTANYL. [Suspect]
     Active Substance: FENTANYL
     Indication: PAIN
     Route: 062

REACTIONS (1)
  - Drug interaction [Unknown]
